FAERS Safety Report 9010186 (Version 1)
Quarter: 2013Q1

REPORT INFORMATION
  Report Type: Spontaneous
  Country: IT (occurrence: IT)
  Receive Date: 20130110
  Receipt Date: 20130110
  Transmission Date: 20140127
  Serious: Yes (Hospitalization)
  Sender: FDA-Public Use
  Company Number: PHHY2012IT123546

PATIENT
  Age: 87 Year
  Sex: Female

DRUGS (8)
  1. TEGRETOL [Suspect]
     Route: 048
     Dates: start: 20121206, end: 20121206
  2. FEMARA [Suspect]
     Indication: BREAST CANCER
     Route: 048
     Dates: start: 20121206, end: 20121206
  3. GARDENALE [Suspect]
     Route: 048
     Dates: start: 20121206, end: 20121206
  4. PREFOLIC [Concomitant]
     Dosage: UNK UKN, UNK
     Route: 048
     Dates: start: 20121206, end: 20121206
  5. DIBASE [Concomitant]
     Dosage: UNK UKN, UNK
     Route: 048
     Dates: start: 20121206, end: 20121206
  6. MOVICOL [Concomitant]
     Dosage: UNK UKN, UNK
     Dates: start: 20121206, end: 20121206
  7. DOBETIN [Concomitant]
     Dosage: UNK UKN, UNK
     Dates: start: 20121206, end: 20121206
  8. OSSEOR [Concomitant]
     Dosage: UNK UKN, UNK
     Route: 048
     Dates: start: 20121206, end: 20121206

REACTIONS (1)
  - Femur fracture [Recovering/Resolving]
